FAERS Safety Report 21182654 (Version 3)
Quarter: 2022Q4

REPORT INFORMATION
  Report Type: Spontaneous
  Country: US (occurrence: US)
  Receive Date: 20220808
  Receipt Date: 20221114
  Transmission Date: 20230113
  Serious: Yes (Hospitalization)
  Sender: FDA-Public Use
  Company Number: US-BIOVITRUM-2022US09215

PATIENT
  Age: 27 Year
  Sex: Female

DRUGS (2)
  1. KINERET [Suspect]
     Active Substance: ANAKINRA
     Indication: Still^s disease
     Dates: start: 20200624
  2. KINERET [Suspect]
     Active Substance: ANAKINRA
     Dates: start: 202207

REACTIONS (10)
  - Influenza [Unknown]
  - Nasopharyngitis [Unknown]
  - COVID-19 [Unknown]
  - Swelling [Unknown]
  - Pain [Unknown]
  - Erythema [Unknown]
  - Heart rate decreased [Unknown]
  - Vertigo [Unknown]
  - Product dose omission issue [Unknown]
  - Off label use [Unknown]

NARRATIVE: CASE EVENT DATE: 20200624
